FAERS Safety Report 11559104 (Version 1)
Quarter: 2015Q3

REPORT INFORMATION
  Report Type: Spontaneous
  Country: US (occurrence: US)
  Receive Date: 20150916
  Receipt Date: 20150916
  Transmission Date: 20151125
  Serious: No
  Sender: FDA-Public Use
  Company Number: US-ELI_LILLY_AND_COMPANY-US200808000485

PATIENT
  Sex: Female

DRUGS (6)
  1. PRAVASTATIN [Concomitant]
     Active Substance: PRAVASTATIN\PRAVASTATIN SODIUM
  2. ZETIA [Concomitant]
     Active Substance: EZETIMIBE
  3. CALCIUM [Concomitant]
     Active Substance: CALCIUM
  4. WELCHOL [Concomitant]
     Active Substance: COLESEVELAM HYDROCHLORIDE
  5. FORTEO [Suspect]
     Active Substance: TERIPARATIDE
     Dates: start: 200805
  6. HYDROCHLOROTHIAZIDE. [Concomitant]
     Active Substance: HYDROCHLOROTHIAZIDE
     Dosage: 25 MG, DAILY (1/D)

REACTIONS (2)
  - Urticaria [Not Recovered/Not Resolved]
  - Fear of injection [Recovered/Resolved]

NARRATIVE: CASE EVENT DATE: 2008
